FAERS Safety Report 14377818 (Version 1)
Quarter: 2018Q1

REPORT INFORMATION
  Report Type: Spontaneous
  Country: US (occurrence: US)
  Receive Date: 20180111
  Receipt Date: 20180111
  Transmission Date: 20180509
  Serious: No
  Sender: FDA-Public Use
  Company Number: US-MYLANLABS-2017M1078989

PATIENT
  Sex: Female

DRUGS (1)
  1. AZELASTINE HYDROCHLORIDE NASAL SPRAY [Suspect]
     Active Substance: AZELASTINE HYDROCHLORIDE
     Indication: RHINITIS ALLERGIC
     Dosage: INTRANASAL 1 SPIN SOLUTION,TWICE DAILY
     Route: 045
     Dates: end: 20171213

REACTIONS (3)
  - Headache [Not Recovered/Not Resolved]
  - Blood pressure increased [Unknown]
  - Photopsia [Unknown]

NARRATIVE: CASE EVENT DATE: 20171212
